FAERS Safety Report 7044158-7 (Version None)
Quarter: 2010Q4

REPORT INFORMATION
  Report Type: 
  Country: None (occurrence: None)
  Receive Date: 20101013
  Receipt Date: 20101008
  Transmission Date: 20110411
  Serious: No
  Sender: FDA-Public Use
  Company Number: US-PFIZER INC-2010128279

PATIENT
  Age: 12 Year
  Sex: Male

DRUGS (3)
  1. ZYVOX [Suspect]
     Dosage: UNK
  2. CLINDAMYCIN HCL [Suspect]
     Dosage: UNK
  3. AFRIN [Suspect]
     Route: 045

REACTIONS (3)
  - MYALGIA [None]
  - PAIN [None]
  - SNEEZING [None]
